FAERS Safety Report 5015023-1 (Version None)
Quarter: 2006Q2

REPORT INFORMATION
  Report Type: 
  Country: None (occurrence: None)
  Receive Date: 20060425
  Receipt Date: 20060110
  Transmission Date: 20061013
  Serious: Yes (Other)
  Sender: FDA-Public Use
  Company Number: WAES 0601USA01146

PATIENT
  Age: 8 Year
  Sex: Male

DRUGS (2)
  1. SINGULAIR [Suspect]
     Dosage: 5 MG/DAILY/PO
     Route: 048
  2. NASONEX [Concomitant]

REACTIONS (1)
  - CONVULSION [None]
